FAERS Safety Report 7857637 (Version 3)
Quarter: 2012Q4

REPORT INFORMATION
  Report Type: Report from Study
  Country: GB (occurrence: GB)
  Receive Date: 20110316
  Receipt Date: 20121112
  Transmission Date: 20130627
  Serious: Yes (Hospitalization)
  Sender: FDA-Public Use
  Company Number: GB-PFIZER INC-2011055123

PATIENT
  Age: 22 Year
  Sex: Male

DRUGS (11)
  1. SUTENT [Suspect]
     Indication: UROTHELIAL CARCINOMA
     Dosage: 25 mg, UNK
     Dates: start: 20101028, end: 20110309
  2. GEMCITABINE [Suspect]
     Indication: TRANSITIONAL CELL CARCINOMA
  3. CISPLATIN [Suspect]
     Indication: TRANSITIONAL CELL CARCINOMA
  4. PARACETAMOL [Concomitant]
     Dosage: 1 g, UNK
     Route: 048
  5. DICLOFENAC [Concomitant]
     Dosage: 150 mg, UNK
     Route: 048
  6. OMEPRAZOLE [Concomitant]
     Dosage: 40 mg, UNK
     Route: 048
  7. MST [Concomitant]
     Dosage: 40 mg, UNK
     Route: 048
  8. METOCLOPRAMIDE [Concomitant]
     Dosage: 80 mg, UNK
     Route: 048
     Dates: start: 20101028
  9. TRIMETHOPRIM [Concomitant]
     Dosage: 200 mg, UNK
     Route: 048
     Dates: start: 20110302
  10. SENNA [Concomitant]
     Dosage: UNK
     Route: 048
  11. LACTULOSE [Concomitant]
     Dosage: UNK
     Route: 048

REACTIONS (1)
  - Dizziness [Recovered/Resolved]
